FAERS Safety Report 9481992 (Version 2)
Quarter: 2013Q4

REPORT INFORMATION
  Report Type: Spontaneous
  Country: FR (occurrence: FR)
  Receive Date: 20130828
  Receipt Date: 20131008
  Transmission Date: 20140711
  Serious: Yes (Hospitalization)
  Sender: FDA-Public Use
  Company Number: FR-AMGEN-FRASP2013059586

PATIENT
  Age: 77 Year
  Sex: Male

DRUGS (4)
  1. XGEVA [Suspect]
     Indication: PRODUCT USED FOR UNKNOWN INDICATION
     Dosage: 120 MG, UNK
     Route: 058
     Dates: start: 20130404, end: 20130702
  2. ENANTONE                           /00726901/ [Concomitant]
     Dosage: UNK
     Dates: start: 201107
  3. TAXOTERE [Concomitant]
     Route: 065
  4. IDEOS [Concomitant]

REACTIONS (1)
  - Femur fracture [Recovered/Resolved]
